FAERS Safety Report 5716294-6 (Version None)
Quarter: 2008Q2

REPORT INFORMATION
  Report Type: 
  Country: None (occurrence: None)
  Receive Date: 20080424
  Receipt Date: 20080416
  Transmission Date: 20081010
  Serious: Yes (Life-Threatening, Hospitalization)
  Sender: FDA-Public Use
  Company Number: B0517847A

PATIENT
  Age: 28 Year
  Sex: Female

DRUGS (4)
  1. ALBENDAZOLE [Suspect]
     Dosage: 1TAB SINGLE DOSE
     Route: 048
     Dates: start: 20070624, end: 20070624
  2. DIETHYLCARBAMAZINE CITRATE [Suspect]
     Dosage: 3TAB SINGLE DOSE
     Route: 048
     Dates: start: 20070624, end: 20070624
  3. UNKNOWN TREATMENT FOR EPIGASTRIC PAIN [Concomitant]
  4. UNKNOWN MEDICATION [Concomitant]

REACTIONS (7)
  - ABDOMINAL PAIN UPPER [None]
  - ANOREXIA [None]
  - DIZZINESS [None]
  - GASTROENTERITIS [None]
  - NAUSEA [None]
  - PYREXIA [None]
  - VOMITING [None]
